FAERS Safety Report 14756035 (Version 2)
Quarter: 2020Q1

REPORT INFORMATION
  Report Type: Spontaneous
  Country: BE (occurrence: BE)
  Receive Date: 20180413
  Receipt Date: 20200331
  Transmission Date: 20200409
  Serious: No
  Sender: FDA-Public Use
  Company Number: BE-ALKEM LABORATORIES LIMITED-NL-ALKEM-2017-02059

PATIENT
  Age: 40 Year
  Sex: Male

DRUGS (5)
  1. ZOLPIDEM [Suspect]
     Active Substance: ZOLPIDEM TARTRATE
     Indication: INSOMNIA
     Dosage: 10 MILLIGRAM, QD
     Route: 065
  2. QUETIAPINE FUMARATE. [Suspect]
     Active Substance: QUETIAPINE FUMARATE
     Dosage: 133 MILLIGRAM, QD
     Route: 065
  3. QUETIAPINE FUMARATE. [Suspect]
     Active Substance: QUETIAPINE FUMARATE
     Indication: INSOMNIA
     Dosage: 25 MILLIGRAM, QD, BEFORE BEDTIME
     Route: 065
  4. QUETIAPINE FUMARATE. [Suspect]
     Active Substance: QUETIAPINE FUMARATE
     Indication: PRODUCT USE IN UNAPPROVED INDICATION
     Dosage: INCREAAED TO 100 MILLIGRAM, QD DURING THE SUBSEQUENT 2 MONTHS
     Route: 065
  5. QUETIAPINE FUMARATE. [Suspect]
     Active Substance: QUETIAPINE FUMARATE
     Dosage: 1625 MILLIGRAM, QD
     Route: 065

REACTIONS (4)
  - Prescribed overdose [Unknown]
  - Off label use [Unknown]
  - Drug tolerance [Unknown]
  - Drug ineffective for unapproved indication [Unknown]
